FAERS Safety Report 24427896 (Version 1)
Quarter: 2024Q4

REPORT INFORMATION
  Report Type: Spontaneous
  Country: BR (occurrence: BR)
  Receive Date: 20241011
  Receipt Date: 20241011
  Transmission Date: 20250115
  Serious: Yes (Hospitalization, Other)
  Sender: ABBVIE
  Company Number: BR-ABBVIE-5945198

PATIENT
  Sex: Male

DRUGS (1)
  1. RINVOQ [Suspect]
     Active Substance: UPADACITINIB
     Indication: Colitis ulcerative
     Dosage: END DATE : 2024?FORM STRENGTH: 45 MILLIGRAM
     Route: 048
     Dates: start: 202409

REACTIONS (5)
  - Lymph node tuberculosis [Unknown]
  - Pneumonia [Unknown]
  - Hyperhidrosis [Unknown]
  - Pyrexia [Unknown]
  - Pulmonary tuberculosis [Unknown]
